FAERS Safety Report 20839109 (Version 1)
Quarter: 2022Q2

REPORT INFORMATION
  Report Type: Spontaneous
  Country: US (occurrence: US)
  Receive Date: 20220517
  Receipt Date: 20220517
  Transmission Date: 20220721
  Serious: Yes (Life-Threatening, Hospitalization, Other)
  Sender: FDA-Public Use
  Company Number: US-Hikma Pharmaceuticals USA Inc.-US-H14001-22-01237

PATIENT
  Age: 97 Year
  Sex: Male
  Weight: 84 kg

DRUGS (5)
  1. CEFAZOLIN [Suspect]
     Active Substance: CEFAZOLIN
     Indication: Bacteraemia
     Route: 040
     Dates: start: 20220414, end: 20220422
  2. CEFAZOLIN [Suspect]
     Active Substance: CEFAZOLIN
     Route: 040
     Dates: start: 20220414, end: 20220414
  3. CEFAZOLIN [Suspect]
     Active Substance: CEFAZOLIN
     Route: 040
     Dates: start: 20220415, end: 20220415
  4. CEFAZOLIN [Suspect]
     Active Substance: CEFAZOLIN
     Route: 040
     Dates: start: 20220418, end: 20220418
  5. CEFAZOLIN [Suspect]
     Active Substance: CEFAZOLIN
     Route: 040
     Dates: start: 20220421, end: 20220422

REACTIONS (6)
  - Sneezing [Recovered/Resolved]
  - Throat irritation [Recovered/Resolved]
  - Malaise [Recovered/Resolved]
  - Dyspnoea [Recovered/Resolved]
  - Unresponsive to stimuli [Recovered/Resolved]
  - Drug hypersensitivity [Recovered/Resolved]

NARRATIVE: CASE EVENT DATE: 20220422
